FAERS Safety Report 16001451 (Version 1)
Quarter: 2019Q1

REPORT INFORMATION
  Report Type: Spontaneous
  Country: BR (occurrence: BR)
  Receive Date: 20190225
  Receipt Date: 20190225
  Transmission Date: 20190418
  Serious: Yes (Other)
  Sender: FDA-Public Use
  Company Number: BR-ELI_LILLY_AND_COMPANY-BR201712002236

PATIENT
  Age: 51 Year
  Sex: Female

DRUGS (8)
  1. RIVOTRIL [Concomitant]
     Active Substance: CLONAZEPAM
     Indication: SLEEP DISORDER
  2. LUFTAL                             /00159501/ [Concomitant]
     Indication: PRODUCT USED FOR UNKNOWN INDICATION
     Dosage: UNK, UNKNOWN
     Route: 065
  3. FORTEO [Suspect]
     Active Substance: TERIPARATIDE
     Indication: PRODUCT USED FOR UNKNOWN INDICATION
     Dosage: UNK, UNKNOWN
     Route: 065
     Dates: start: 20171001
  4. VITAMIN D                          /00107901/ [Concomitant]
     Active Substance: ERGOCALCIFEROL
     Indication: PRODUCT USED FOR UNKNOWN INDICATION
     Dosage: UNK, UNKNOWN
     Route: 065
  5. OXYCONTIN [Concomitant]
     Active Substance: OXYCODONE HYDROCHLORIDE
     Indication: PRODUCT USED FOR UNKNOWN INDICATION
     Dosage: UNK, OTHER
     Route: 065
  6. LEVOID [Suspect]
     Active Substance: LEVOTHYROXINE
     Indication: THYROID DISORDER
     Dosage: 38 MG, EACH MORNING
     Route: 065
  7. ESTRADIOL. [Concomitant]
     Active Substance: ESTRADIOL
     Indication: HORMONE REPLACEMENT THERAPY
     Dosage: 1 MG, UNK
  8. CALCIUM [Concomitant]
     Active Substance: CALCIUM
     Indication: PRODUCT USED FOR UNKNOWN INDICATION
     Dosage: UNK, UNKNOWN
     Route: 065

REACTIONS (36)
  - Product dose omission [Unknown]
  - Scoliosis [Unknown]
  - Arthralgia [Recovering/Resolving]
  - Headache [Unknown]
  - Depressed mood [Unknown]
  - Paraesthesia [Unknown]
  - Nausea [Not Recovered/Not Resolved]
  - Malaise [Not Recovered/Not Resolved]
  - Inflammation [Unknown]
  - Umbilical hernia [Unknown]
  - Vomiting [Unknown]
  - Bone disorder [Recovered/Resolved]
  - Gastritis [Unknown]
  - Palpitations [Unknown]
  - Bone disorder [Unknown]
  - Incorrect product administration duration [Unknown]
  - Spinal deformity [Unknown]
  - Exostosis [Unknown]
  - Depression [Not Recovered/Not Resolved]
  - Blood calcium abnormal [Unknown]
  - Blood pressure increased [Recovered/Resolved]
  - Muscle tightness [Unknown]
  - Flatulence [Unknown]
  - Injection site pain [Unknown]
  - Injection site bruising [Unknown]
  - Urinary tract infection [Unknown]
  - Anxiety [Unknown]
  - Nephrolithiasis [Unknown]
  - Nervousness [Unknown]
  - Bone formation increased [Unknown]
  - Musculoskeletal disorder [Unknown]
  - Hypoaesthesia [Unknown]
  - Abdominal pain [Unknown]
  - Pain [Recovering/Resolving]
  - Pain in extremity [Recovering/Resolving]
  - Neuropathy peripheral [Unknown]

NARRATIVE: CASE EVENT DATE: 201804
